FAERS Safety Report 4457522-7 (Version None)
Quarter: 2004Q3

REPORT INFORMATION
  Report Type: 
  Country: None (occurrence: None)
  Receive Date: 20040921
  Receipt Date: 20040907
  Transmission Date: 20050211
  Serious: Yes (Hospitalization)
  Sender: FDA-Public Use
  Company Number: A0357428A

PATIENT
  Age: 24 Year
  Sex: Female

DRUGS (4)
  1. PAXIL [Suspect]
     Indication: DEPRESSION
     Dosage: 20 MG/ PER DAY/ ORAL
     Route: 048
     Dates: start: 19991001, end: 20000101
  2. PAXIL [Suspect]
     Indication: DEPRESSION
     Dosage: 20 MG/ PER DAY/ ORAL
     Route: 048
     Dates: start: 20000101, end: 20001101
  3. PAXIL [Suspect]
     Indication: DEPRESSION
     Dosage: 10 MG/ PER DAY/ ORAL
     Route: 048
     Dates: start: 20011101, end: 20011129
  4. VENLAFAXINE HCL [Concomitant]

REACTIONS (12)
  - AGGRESSION [None]
  - ASTHENIA [None]
  - CRYING [None]
  - DEPRESSION [None]
  - DRUG EFFECT DECREASED [None]
  - DRUG WITHDRAWAL SYNDROME [None]
  - DYSPEPSIA [None]
  - MIGRAINE [None]
  - PAIN [None]
  - SOMNOLENCE [None]
  - SUICIDAL IDEATION [None]
  - TREATMENT NONCOMPLIANCE [None]
